FAERS Safety Report 8785917 (Version 3)
Quarter: 2013Q3

REPORT INFORMATION
  Report Type: Report from Study
  Country: JP (occurrence: JP)
  Receive Date: 20120914
  Receipt Date: 20130904
  Transmission Date: 20140515
  Serious: Yes (Other)
  Sender: FDA-Public Use
  Company Number: JP-VERTEX PHARMACEUTICAL INC.-AE-2012-010909

PATIENT
  Age: 59 Year
  Sex: Female

DRUGS (10)
  1. VX-950 (TELAPREVIR) [Suspect]
     Indication: CHRONIC HEPATITIS C
     Dosage: 2250 MG, QD
     Route: 048
     Dates: start: 20120517, end: 20120620
  2. VX-950 (TELAPREVIR) [Suspect]
     Dosage: 1500 MG, QD
     Route: 048
     Dates: start: 20120621, end: 20120704
  3. PEGINTRON [Suspect]
     Indication: CHRONIC HEPATITIS C
     Dosage: 1.5 ?G/KG, QW
     Route: 058
     Dates: start: 20120517, end: 20120628
  4. PEGINTRON [Suspect]
     Dosage: 0.75 ?G/KG, QW
     Route: 058
     Dates: start: 20120705, end: 20120705
  5. RIBAVIRIN [Suspect]
     Indication: CHRONIC HEPATITIS C
     Dosage: 600 MG, QD
     Route: 048
     Dates: start: 20120517, end: 20120606
  6. RIBAVIRIN [Suspect]
     Dosage: 200 MG, QD
     Route: 048
     Dates: start: 20120607, end: 20120627
  7. URSO [Concomitant]
     Dosage: 600 MG, QD
     Route: 048
     Dates: end: 20120613
  8. URSO [Concomitant]
     Dosage: 600 MG, QD
     Route: 048
     Dates: start: 20121025
  9. GLYCYRON [Concomitant]
     Dosage: 3 DF, QD
     Route: 048
     Dates: end: 20120613
  10. GLYCYRON [Concomitant]
     Dosage: 3 DF, QD
     Route: 048
     Dates: start: 20121025

REACTIONS (2)
  - Depressive symptom [Recovered/Resolved]
  - Hypercreatininaemia [Recovered/Resolved]
